FAERS Safety Report 18405930 (Version 3)
Quarter: 2020Q4

REPORT INFORMATION
  Report Type: Spontaneous
  Country: ES (occurrence: ES)
  Receive Date: 20201020
  Receipt Date: 20201124
  Transmission Date: 20210114
  Serious: Yes (Hospitalization, Other)
  Sender: FDA-Public Use
  Company Number: ES-MYLANLABS-2020M1087834

PATIENT
  Age: 47 Year
  Sex: Male

DRUGS (3)
  1. METHADONE HYDROCHLORIDE. [Concomitant]
     Active Substance: METHADONE HYDROCHLORIDE
     Indication: DRUG DEPENDENCE
     Dosage: 15 MILLIGRAM, QD
  2. EFAVIRENZ. [Suspect]
     Active Substance: EFAVIRENZ
     Dosage: UNK
     Route: 048
  3. EFAVIRENZ. [Suspect]
     Active Substance: EFAVIRENZ
     Indication: HIV INFECTION
     Dosage: 400 MILLIGRAM, Q24H
     Route: 048

REACTIONS (13)
  - Bipolar disorder [Recovered/Resolved]
  - Psychotic symptom [Recovered/Resolved]
  - Central nervous system lesion [Unknown]
  - Suicidal ideation [Recovered/Resolved]
  - Psychotic behaviour [Recovered/Resolved]
  - Insomnia [Recovered/Resolved]
  - Delusional perception [Recovered/Resolved]
  - Mania [Recovered/Resolved]
  - Psychotic disorder [Recovered/Resolved]
  - Atrophy [Unknown]
  - Psychiatric decompensation [Recovered/Resolved]
  - Delirium [Recovered/Resolved]
  - Hallucination, auditory [Unknown]
